FAERS Safety Report 23267888 (Version 1)
Quarter: 2023Q4

REPORT INFORMATION
  Report Type: Spontaneous
  Country: AU (occurrence: AU)
  Receive Date: 20231206
  Receipt Date: 20231206
  Transmission Date: 20240109
  Serious: Yes (Death)
  Sender: FDA-Public Use
  Company Number: AU-LUNDBECK-DKLU3071016

PATIENT
  Age: 58 Year
  Sex: Female

DRUGS (2)
  1. BRINTELLIX [Suspect]
     Active Substance: VORTIOXETINE HYDROBROMIDE
     Indication: Major depression
     Dosage: 1 DOSAGE FORM, QD
     Route: 048
     Dates: start: 20180118, end: 20220704
  2. BRINTELLIX [Suspect]
     Active Substance: VORTIOXETINE HYDROBROMIDE
     Indication: Bipolar disorder
     Dosage: 2 DOSAGE FORM, QD
     Route: 048
     Dates: start: 20220704, end: 20220704

REACTIONS (1)
  - Intentional overdose [Fatal]

NARRATIVE: CASE EVENT DATE: 20220704
